FAERS Safety Report 7230946-0 (Version None)
Quarter: 2011Q1

REPORT INFORMATION
  Report Type: 
  Country: None (occurrence: None)
  Receive Date: 20110118
  Receipt Date: 20110110
  Transmission Date: 20110831
  Serious: Yes (Hospitalization)
  Sender: FDA-Public Use
  Company Number: US-ROCHE-743576

PATIENT
  Sex: Female
  Weight: 57.2 kg

DRUGS (8)
  1. XANAX [Concomitant]
  2. FLECTOR [Concomitant]
     Dosage: DRUG: FLECTOR PATCH
  3. PLAQUENIL [Concomitant]
  4. ACTEMRA [Suspect]
     Indication: RHEUMATOID ARTHRITIS
     Dosage: DOSE: 4 MG/KG; FORM: INFUSION
     Route: 042
     Dates: start: 20101013
  5. VOLTAREN [Concomitant]
     Dosage: DRUG REPORTED AS VOLTARYEN GEL
  6. PREDNISONE [Concomitant]
  7. TRIMEDAL [Concomitant]
  8. SAVELLA [Concomitant]

REACTIONS (4)
  - DEHYDRATION [None]
  - DIARRHOEA [None]
  - COLITIS [None]
  - WEIGHT DECREASED [None]
